FAERS Safety Report 8035669-6 (Version None)
Quarter: 2012Q1

REPORT INFORMATION
  Report Type: 
  Country: None (occurrence: None)
  Receive Date: 20120111
  Receipt Date: 20111229
  Transmission Date: 20120608
  Serious: Yes (Other)
  Sender: FDA-Public Use
  Company Number: US-UCBSA-030180

PATIENT
  Age: 47 Year
  Sex: Male
  Weight: 74.38 kg

DRUGS (23)
  1. M.V.I. [Concomitant]
     Indication: SUPPLEMENTATION THERAPY
     Route: 048
     Dates: start: 20080901
  2. HYDROMORPHONE HCL [Concomitant]
     Indication: PAIN
     Dosage: 2 MG PRN
     Route: 048
  3. CIMZIA [Suspect]
     Route: 058
     Dates: start: 20080905, end: 20080101
  4. LABETELOL [Concomitant]
     Indication: BLOOD PRESSURE
     Route: 048
     Dates: start: 20091007
  5. VITAMIN D [Concomitant]
     Indication: VITAMIN D DEFICIENCY
     Route: 048
     Dates: start: 20110328
  6. CYTRA-E [Concomitant]
     Indication: PROPHYLAXIS
     Route: 048
     Dates: start: 20100701
  7. ENTOCORT EC [Concomitant]
     Indication: CROHN'S DISEASE
     Route: 048
     Dates: start: 20100303
  8. NITROGLYCERIN [Concomitant]
     Indication: CHEST PAIN
     Dosage: 0.4 MG PRN
     Route: 048
  9. AMLODIPINE [Concomitant]
     Indication: BLOOD PRESSURE
     Route: 048
     Dates: start: 20091001
  10. OMEPRAZOLE [Concomitant]
     Indication: GASTROOESOPHAGEAL REFLUX DISEASE
     Route: 048
     Dates: start: 20110228
  11. TRAMADOL HCL [Concomitant]
     Indication: ABDOMINAL PAIN
     Dosage: EVERY 6 HOURS
     Route: 048
     Dates: start: 20110101
  12. HYDROXYZINE [Concomitant]
     Indication: PRURITUS
     Dosage: 25 MG PRN
     Route: 048
  13. LYRICA [Concomitant]
     Indication: FIBROMYALGIA
     Route: 048
  14. CLARITIN [Concomitant]
     Indication: SEASONAL ALLERGY
     Route: 048
     Dates: start: 20101001
  15. WELLBUTRIN [Concomitant]
     Route: 048
     Dates: start: 20101001
  16. CARAFATE [Concomitant]
     Indication: GASTROOESOPHAGEAL REFLUX DISEASE
     Route: 048
     Dates: start: 20110228
  17. CIMZIA [Suspect]
     Dosage: ONCE EVERY 3 WEEKS
     Route: 058
  18. WELLBUTRIN [Concomitant]
     Indication: DEPRESSION
     Route: 048
     Dates: start: 20101001
  19. VITAMIN B-12 [Concomitant]
     Indication: VITAMIN B12 DEFICIENCY
     Route: 048
     Dates: start: 20110328
  20. CIMZIA [Suspect]
     Indication: CROHN'S DISEASE
     Route: 058
  21. CIMZIA [Suspect]
     Route: 058
     Dates: start: 20080101
  22. LYRICA [Concomitant]
     Route: 048
     Dates: start: 20100601
  23. CALCIUM / VITAMIN D [Concomitant]
     Indication: SUPPLEMENTATION THERAPY
     Dosage: 500 MG/?IU TAKEN TWICE DAILY, NUMBER OF INTAKES:2
     Route: 048
     Dates: start: 20080901

REACTIONS (12)
  - MUSCULOSKELETAL PAIN [None]
  - TREMOR [None]
  - INJECTION SITE PAIN [None]
  - POLLAKIURIA [None]
  - EXOSTOSIS [None]
  - URINE COLOUR ABNORMAL [None]
  - OSTEOARTHRITIS [None]
  - URINE OUTPUT INCREASED [None]
  - MUSCULOSKELETAL CHEST PAIN [None]
  - BURSITIS [None]
  - CROHN'S DISEASE [None]
  - INJECTION SITE MASS [None]
